FAERS Safety Report 10053234 (Version 1)
Quarter: 2014Q2

REPORT INFORMATION
  Report Type: Spontaneous
  Country: FR (occurrence: FR)
  Receive Date: 20140402
  Receipt Date: 20140402
  Transmission Date: 20141212
  Serious: Yes (Hospitalization)
  Sender: FDA-Public Use
  Company Number: FR-GLAXOSMITHKLINE-B0981353A

PATIENT
  Age: 56 Year
  Sex: Female

DRUGS (6)
  1. TAFINLAR [Suspect]
     Indication: METASTATIC MALIGNANT MELANOMA
     Dosage: 150MG TWICE PER DAY
     Route: 048
     Dates: start: 20140117, end: 20140126
  2. HYDROCORTISONE [Concomitant]
     Route: 065
  3. LEVOTHYROX [Concomitant]
     Route: 065
  4. DEROXAT [Concomitant]
     Route: 065
  5. INDAPAMIDE [Concomitant]
     Route: 065
  6. TRAVATAN [Concomitant]
     Route: 065

REACTIONS (8)
  - Vomiting [Recovered/Resolved]
  - Dehydration [Recovered/Resolved]
  - Pyrexia [Recovered/Resolved]
  - C-reactive protein increased [Recovered/Resolved]
  - Hypotension [Unknown]
  - Hypokalaemia [Unknown]
  - Hyponatraemia [Unknown]
  - Renal failure [Recovered/Resolved]
